FAERS Safety Report 7178022-X (Version None)
Quarter: 2010Q4

REPORT INFORMATION
  Report Type: 
  Country: None (occurrence: None)
  Receive Date: 20101220
  Receipt Date: 20101207
  Transmission Date: 20110411
  Serious: No
  Sender: FDA-Public Use
  Company Number: NL-ACTELION-A-CH2010-40975

PATIENT
  Sex: Female
  Weight: 70 kg

DRUGS (13)
  1. BOSENTAN TABLET 62.5 MG DUO EU [Suspect]
     Indication: SKIN ULCER
     Dosage: 125 MG, BID
     Route: 048
     Dates: start: 20100115, end: 20100920
  2. BOSENTAN TABLET 62.5 MG DUO EU [Suspect]
     Dosage: 62.5 MG, BID
     Route: 048
     Dates: start: 20091219, end: 20100114
  3. AMITRIPTYLINE [Concomitant]
  4. ATORVASTATIN [Concomitant]
  5. EZETIMIBE [Concomitant]
  6. FOLIC ACID [Concomitant]
  7. ISOSORBIDE MONONITRATE [Concomitant]
  8. METFORMIN HCL [Concomitant]
  9. METHOTREXATE [Concomitant]
  10. NEXIUM [Concomitant]
  11. NIFEDIPINE [Concomitant]
  12. TOLBUTAMIDE [Concomitant]
  13. NAPROXEN [Concomitant]

REACTIONS (1)
  - HEADACHE [None]
